FAERS Safety Report 5238424-5 (Version None)
Quarter: 2007Q1

REPORT INFORMATION
  Report Type: 
  Country: None (occurrence: None)
  Receive Date: 20070215
  Receipt Date: 20070206
  Transmission Date: 20070707
  Serious: Yes (Hospitalization, Other)
  Sender: FDA-Public Use
  Company Number: 2007PK00253

PATIENT
  Age: 19425 Day
  Sex: Female

DRUGS (2)
  1. NOLVADEX [Suspect]
     Indication: BREAST CANCER FEMALE
     Route: 048
     Dates: start: 20050407, end: 20060726
  2. ZOLADEX [Concomitant]
     Indication: BREAST CANCER FEMALE
     Route: 058

REACTIONS (4)
  - BENIGN OVARIAN TUMOUR [None]
  - OVARIAN ADENOMA [None]
  - OVARIAN CYST [None]
  - VAGINAL HAEMORRHAGE [None]
